FAERS Safety Report 8495132 (Version 2)
Quarter: 2013Q4

REPORT INFORMATION
  Report Type: Spontaneous
  Country: TR (occurrence: TR)
  Receive Date: 20120405
  Receipt Date: 20131224
  Transmission Date: 20140711
  Serious: Yes (Hospitalization, Other)
  Sender: FDA-Public Use
  Company Number: TR-JNJFOC-20120315226

PATIENT
  Age: 49 Year
  Sex: Male

DRUGS (7)
  1. RISPERIDONE [Suspect]
     Indication: DELUSIONAL DISORDER, UNSPECIFIED TYPE
     Route: 048
     Dates: start: 2004
  2. FLUOXETINE [Suspect]
     Indication: DELUSIONAL DISORDER, UNSPECIFIED TYPE
     Route: 065
     Dates: start: 2004
  3. QUETIAPINE [Suspect]
     Indication: DELUSIONAL DISORDER, UNSPECIFIED TYPE
     Route: 065
  4. OLANZAPINE [Suspect]
     Indication: DELUSIONAL DISORDER, UNSPECIFIED TYPE
     Route: 065
  5. ARIPIPRAZOLE [Suspect]
     Indication: DELUSIONAL DISORDER, UNSPECIFIED TYPE
     Route: 065
  6. AMISULPRIDE [Suspect]
     Indication: DELUSIONAL DISORDER, UNSPECIFIED TYPE
     Route: 065
  7. HALOPERIDOL [Suspect]
     Indication: DELUSIONAL DISORDER, UNSPECIFIED TYPE
     Route: 065

REACTIONS (4)
  - Drug ineffective [Recovered/Resolved]
  - Alcohol abuse [Recovered/Resolved]
  - Erectile dysfunction [Recovering/Resolving]
  - Treatment noncompliance [Recovered/Resolved]
